FAERS Safety Report 17827946 (Version 1)
Quarter: 2020Q2

REPORT INFORMATION
  Report Type: Spontaneous
  Country: IN (occurrence: US)
  Receive Date: 20200527
  Receipt Date: 20200527
  Transmission Date: 20200714
  Serious: Yes (Other)
  Sender: FDA-Public Use
  Company Number: US-ELI_LILLY_AND_COMPANY-US202005005810

PATIENT
  Age: 13 Year
  Sex: Male

DRUGS (5)
  1. RISPERIDONE. [Interacting]
     Active Substance: RISPERIDONE
     Indication: ACUTE PSYCHOSIS
     Dosage: CROSS-TAPER FROM RISPERIDONE TO QUETIAPINE.
  2. OLANZAPINE. [Suspect]
     Active Substance: OLANZAPINE
     Indication: AGITATION
     Dosage: 5 MG, UNKNOWN
     Route: 048
  3. QUETIAPINE. [Interacting]
     Active Substance: QUETIAPINE
     Indication: ACUTE PSYCHOSIS
  4. RISPERIDONE. [Interacting]
     Active Substance: RISPERIDONE
     Dosage: FOR SEVERAL MONTHS
  5. LISDEXAMFETAMINE [Interacting]
     Active Substance: LISDEXAMFETAMINE
     Indication: ATTENTION DEFICIT HYPERACTIVITY DISORDER
     Dosage: FOR SEVERAL MONTHS

REACTIONS (3)
  - Dystonia [Recovered/Resolved]
  - Oculogyric crisis [Recovered/Resolved]
  - Drug interaction [Recovered/Resolved]
